FAERS Safety Report 8050052-5 (Version None)
Quarter: 2012Q1

REPORT INFORMATION
  Report Type: 
  Country: None (occurrence: None)
  Receive Date: 20120111
  Receipt Date: 20111228
  Transmission Date: 20120608
  Serious: Yes (Death, Life-Threatening, Hospitalization, Disabling, Other)
  Sender: FDA-Public Use
  Company Number: 2011MA018208

PATIENT
  Sex: Female
  Weight: 79.3 kg

DRUGS (44)
  1. CARAFATE [Concomitant]
  2. ESTRACE [Concomitant]
  3. HYDRALAZINE HCL [Concomitant]
  4. HYTRIN [Concomitant]
  5. KLONOPIN [Concomitant]
  6. ROCALTROL [Concomitant]
  7. TYLOX [Concomitant]
  8. ARANESP [Concomitant]
  9. BICARBONATE [Concomitant]
  10. EPINEPHRINE [Concomitant]
  11. TRAZODONE HCL [Concomitant]
  12. ULTRAM [Concomitant]
  13. ZYLOPRIM [Concomitant]
  14. DIGOXIN [Suspect]
     Indication: PRODUCT USED FOR UNKNOWN INDICATION
     Dosage: 125 MCG
     Dates: start: 20070426, end: 20070803
  15. ALLOPURINOL [Concomitant]
  16. DESYREL [Concomitant]
  17. ROSIGLITAZONE [Concomitant]
  18. MIRTAZAPINE [Concomitant]
  19. ZAROXOLYN [Concomitant]
  20. ATIVAN [Concomitant]
  21. ATROPINE [Concomitant]
  22. CIPROFLOXACIN [Concomitant]
  23. REMERON [Concomitant]
  24. ROBAXIN [Concomitant]
  25. SOMA [Concomitant]
  26. TERAZOSIN HCL [Concomitant]
  27. AZULFIDINE [Concomitant]
  28. CLONAZEPAM [Concomitant]
  29. ESTRADERM [Concomitant]
  30. LASIX [Concomitant]
  31. METOLAZONE [Concomitant]
  32. NEXIUM [Concomitant]
  33. AMIODARONE HCL [Concomitant]
  34. CARDIZEM CD [Concomitant]
  35. LEVOPHED [Concomitant]
  36. LOPRESSOR [Concomitant]
  37. MOTRIN [Concomitant]
  38. RENAGEL [Concomitant]
  39. ALBUTEROL [Concomitant]
  40. AMBIEN [Concomitant]
  41. APRESOLINE [Concomitant]
  42. AVANDIA [Concomitant]
  43. PREDNISONE TAB [Concomitant]
  44. TRAMADIL [Concomitant]

REACTIONS (125)
  - MUSCULAR WEAKNESS [None]
  - TREATMENT NONCOMPLIANCE [None]
  - BLOOD TRIGLYCERIDES INCREASED [None]
  - GAIT DISTURBANCE [None]
  - FLUID INTAKE REDUCED [None]
  - DISORIENTATION [None]
  - FLUID OVERLOAD [None]
  - HYPOXIA [None]
  - HYPOXIC-ISCHAEMIC ENCEPHALOPATHY [None]
  - SOMNOLENCE [None]
  - HEART INJURY [None]
  - BACTERIAL TEST POSITIVE [None]
  - NERVE INJURY [None]
  - SINUS BRADYCARDIA [None]
  - OSTEOARTHRITIS [None]
  - HYPOMAGNESAEMIA [None]
  - HYPERKALAEMIA [None]
  - GASTRITIS [None]
  - ARTERIAL DISORDER [None]
  - GENERAL PHYSICAL HEALTH DETERIORATION [None]
  - METABOLIC ACIDOSIS [None]
  - AGITATION [None]
  - URINARY TRACT DISORDER [None]
  - ACUTE RESPIRATORY FAILURE [None]
  - LOSS OF CONSCIOUSNESS [None]
  - CEREBRAL SMALL VESSEL ISCHAEMIC DISEASE [None]
  - CUSHINGOID [None]
  - WHEEZING [None]
  - SINUS TACHYCARDIA [None]
  - CEREBROVASCULAR ACCIDENT [None]
  - DEHYDRATION [None]
  - THROMBOCYTOPENIA [None]
  - FALL [None]
  - DYSPNOEA EXERTIONAL [None]
  - ASTHMA [None]
  - OCCULT BLOOD POSITIVE [None]
  - LACUNAR INFARCTION [None]
  - CENTRAL OBESITY [None]
  - HYPOCHROMASIA [None]
  - BLOOD ALBUMIN DECREASED [None]
  - HAEMODIALYSIS [None]
  - DYSARTHRIA [None]
  - ARRHYTHMIA [None]
  - CYSTITIS [None]
  - ABASIA [None]
  - GASTROINTESTINAL HAEMORRHAGE [None]
  - DIVERTICULUM [None]
  - POLYP [None]
  - COAGULOPATHY [None]
  - LEFT ATRIAL DILATATION [None]
  - CEREBRAL ATROPHY [None]
  - FLAT AFFECT [None]
  - LUNG INFILTRATION [None]
  - NUCLEATED RED CELLS [None]
  - PROTEIN TOTAL DECREASED [None]
  - PNEUMONIA [None]
  - DECREASED ACTIVITY [None]
  - BLOOD CHOLESTEROL INCREASED [None]
  - ANAEMIA [None]
  - CONFUSIONAL STATE [None]
  - COGNITIVE DISORDER [None]
  - PYELONEPHRITIS [None]
  - MUSCLE ATROPHY [None]
  - ARTHRALGIA [None]
  - PULSELESS ELECTRICAL ACTIVITY [None]
  - CARDIO-RESPIRATORY ARREST [None]
  - SYSTEMIC INFLAMMATORY RESPONSE SYNDROME [None]
  - BREATH SOUNDS ABNORMAL [None]
  - CARDIOMEGALY [None]
  - MYELODYSPLASTIC SYNDROME [None]
  - CARDIAC FAILURE [None]
  - DYSURIA [None]
  - IMPAIRED SELF-CARE [None]
  - SOCIAL PROBLEM [None]
  - VENOUS INSUFFICIENCY [None]
  - AFFECT LABILITY [None]
  - LACTIC ACIDOSIS [None]
  - PERIPHERAL ISCHAEMIA [None]
  - ANXIETY [None]
  - RIB FRACTURE [None]
  - TREATMENT FAILURE [None]
  - PROTEIN URINE PRESENT [None]
  - TRICUSPID VALVE INCOMPETENCE [None]
  - ATELECTASIS [None]
  - JUDGEMENT IMPAIRED [None]
  - ANISOCYTOSIS [None]
  - POIKILOCYTOSIS [None]
  - BUNDLE BRANCH BLOCK RIGHT [None]
  - PERICARDIAL EFFUSION [None]
  - SEDATION [None]
  - URETERIC OBSTRUCTION [None]
  - UNRESPONSIVE TO STIMULI [None]
  - GLUCOSE TOLERANCE IMPAIRED [None]
  - PAIN [None]
  - BURSITIS [None]
  - FRACTURE [None]
  - INJURY [None]
  - MYOCARDIAL INFARCTION [None]
  - SYNCOPE [None]
  - BRAIN DEATH [None]
  - DILATATION VENTRICULAR [None]
  - INFUSION SITE EXTRAVASATION [None]
  - MICROCYTOSIS [None]
  - WHITE BLOOD CELL COUNT DECREASED [None]
  - HEPATIC ENZYME INCREASED [None]
  - CAROTID ARTERIOSCLEROSIS [None]
  - RENAL FAILURE ACUTE [None]
  - URINARY TRACT INFECTION [None]
  - URINARY INCONTINENCE [None]
  - PERIPHERAL COLDNESS [None]
  - APHAGIA [None]
  - MENTAL DISORDER [None]
  - TOXICITY TO VARIOUS AGENTS [None]
  - FATIGUE [None]
  - VENTRICULAR FIBRILLATION [None]
  - NASAL CONGESTION [None]
  - COUGH [None]
  - DRUG ADMINISTRATION ERROR [None]
  - PUPILLARY LIGHT REFLEX TESTS ABNORMAL [None]
  - MITRAL VALVE INCOMPETENCE [None]
  - INFUSION SITE HAEMATOMA [None]
  - ATRIOVENTRICULAR BLOCK FIRST DEGREE [None]
  - VENTRICULAR EXTRASYSTOLES [None]
  - LEFT VENTRICULAR DYSFUNCTION [None]
  - AORTIC VALVE CALCIFICATION [None]
